FAERS Safety Report 23724330 (Version 1)
Quarter: 2024Q2

REPORT INFORMATION
  Report Type: Spontaneous
  Country: US (occurrence: US)
  Receive Date: 20240409
  Receipt Date: 20240409
  Transmission Date: 20240716
  Serious: Yes (Life-Threatening)
  Sender: FDA-Public Use
  Company Number: US-Eisai-EC-2024-163369

PATIENT
  Age: 32 Year
  Sex: Female

DRUGS (1)
  1. LENVATINIB [Suspect]
     Active Substance: LENVATINIB
     Indication: Breast angiosarcoma
     Route: 048

REACTIONS (1)
  - Hepatic rupture [Recovered/Resolved]
